FAERS Safety Report 7601964-5 (Version None)
Quarter: 2011Q3

REPORT INFORMATION
  Report Type: 
  Country: None (occurrence: None)
  Receive Date: 20110711
  Receipt Date: 20110621
  Transmission Date: 20111222
  Serious: No
  Sender: FDA-Public Use
  Company Number: US-B.I. PHARMACEUTICALS,INC./RIDGEFIELD-2011-BP-15967BP

PATIENT
  Sex: Female

DRUGS (12)
  1. CENTRUM SILVER [Concomitant]
     Route: 048
  2. LANTUS [Concomitant]
     Indication: DIABETES MELLITUS
     Route: 058
  3. GLIPIZIDE [Concomitant]
     Indication: DIABETES MELLITUS
     Dosage: 5 MG
     Route: 048
  4. DIOVAN HCT [Concomitant]
     Indication: HYPERTENSION
     Route: 048
  5. SPIRIVA [Suspect]
     Indication: CHRONIC OBSTRUCTIVE PULMONARY DISEASE
     Dosage: 18 MCG
     Route: 055
     Dates: start: 20110401, end: 20110627
  6. LIPITOR [Concomitant]
     Indication: BLOOD CHOLESTEROL INCREASED
     Dosage: 20 MG
     Route: 048
  7. FISH OIL [Concomitant]
     Indication: PROPHYLAXIS
     Route: 048
  8. ADVAIR DISKUS 100/50 [Concomitant]
     Indication: CHRONIC OBSTRUCTIVE PULMONARY DISEASE
     Route: 055
  9. OMEPRAZOLE [Concomitant]
     Indication: GASTROOESOPHAGEAL REFLUX DISEASE
  10. VITAMIN TAB [Concomitant]
     Indication: PROPHYLAXIS
  11. ASPIRIN [Concomitant]
     Indication: PROPHYLAXIS
     Dosage: 81 MG
     Route: 048
  12. ALBUTEROL [Concomitant]
     Indication: CHRONIC OBSTRUCTIVE PULMONARY DISEASE
     Route: 055

REACTIONS (11)
  - SENSATION OF FOREIGN BODY [None]
  - TOOTH DISORDER [None]
  - DRY THROAT [None]
  - DRY MOUTH [None]
  - URINARY TRACT INFECTION [None]
  - TONGUE DISORDER [None]
  - DYSPEPSIA [None]
  - GLOSSODYNIA [None]
  - CONSTIPATION [None]
  - VISION BLURRED [None]
  - HEADACHE [None]
